FAERS Safety Report 7003248-5 (Version None)
Quarter: 2010Q3

REPORT INFORMATION
  Report Type: 
  Country: None (occurrence: None)
  Receive Date: 20100916
  Receipt Date: 20100909
  Transmission Date: 20110219
  Serious: Yes (Hospitalization)
  Sender: FDA-Public Use
  Company Number: KV201000297

PATIENT
  Age: 61 Year
  Sex: Female

DRUGS (2)
  1. MORPHINE SULFATE [Suspect]
     Indication: PAIN
     Dosage: 3-5 MG/DAY, INTRATHECAL
     Route: 037
  2. HYDROMORPHONE HYDROCHLORIDE [Suspect]
     Indication: PAIN
     Dosage: 1-2.6 MG/DAY, INTRATHECAL
     Route: 037

REACTIONS (3)
  - CELLULITIS [None]
  - DRUG RESISTANCE [None]
  - PYREXIA [None]
